FAERS Safety Report 5682261-4 (Version None)
Quarter: 2008Q1

REPORT INFORMATION
  Report Type: 
  Country: None (occurrence: None)
  Receive Date: 20080326
  Receipt Date: 20080326
  Transmission Date: 20080703
  Serious: Yes (Hospitalization)
  Sender: FDA-Public Use
  Company Number: None

PATIENT
  Age: 85 Year
  Sex: Male
  Weight: 80 kg

DRUGS (1)
  1. LAMOTRIGINE [Suspect]
     Indication: BIPOLAR DISORDER
     Dosage: 75 MG DAILY PO STARTED PTA. D/C AT ADMIN
     Route: 048

REACTIONS (4)
  - ASTHENIA [None]
  - BALANCE DISORDER [None]
  - NEUTROPENIA [None]
  - PYREXIA [None]
